FAERS Safety Report 24319221 (Version 1)
Quarter: 2024Q3

REPORT INFORMATION
  Report Type: Spontaneous
  Country: TR (occurrence: TR)
  Receive Date: 20240913
  Receipt Date: 20240913
  Transmission Date: 20241017
  Serious: Yes (Death, Other)
  Sender: ADMA BIOLOGICS
  Company Number: TR-ADMA BIOLOGICS INC.-TR-2024ADM000112

PATIENT
  Age: 71 Year
  Sex: Female

DRUGS (3)
  1. HUMAN IMMUNOGLOBULIN G [Suspect]
     Active Substance: HUMAN IMMUNOGLOBULIN G
     Indication: Respiratory distress
     Dosage: UNK, UNK
     Route: 042
  2. CYCLOPHOSPHAMIDE [Suspect]
     Active Substance: CYCLOPHOSPHAMIDE
     Indication: Respiratory distress
     Dosage: UNK, UNK
     Route: 065
  3. METHYLPREDNISOLONE [Concomitant]
     Active Substance: METHYLPREDNISOLONE
     Indication: Glomerulonephritis
     Dosage: 1 GRAM, UNK
     Route: 042

REACTIONS (4)
  - Anti-glomerular basement membrane disease [Fatal]
  - Bradycardia [Fatal]
  - Hypotension [Fatal]
  - Off label use [Unknown]
